FAERS Safety Report 9716902 (Version 1)
Quarter: 2013Q4

REPORT INFORMATION
  Report Type: Spontaneous
  Country: US (occurrence: US)
  Receive Date: 20131127
  Receipt Date: 20131127
  Transmission Date: 20140711
  Serious: No
  Sender: FDA-Public Use
  Company Number: US-GILEAD-2009-0019922

PATIENT
  Sex: Female
  Weight: 54.43 kg

DRUGS (16)
  1. LETAIRIS [Suspect]
     Indication: PULMONARY ARTERIAL HYPERTENSION
     Route: 048
     Dates: start: 20080513
  2. OXYGEN [Concomitant]
     Route: 055
  3. REVATIO [Concomitant]
     Route: 048
  4. ALBUTEROL INHALER [Concomitant]
     Route: 055
  5. NORVASC [Concomitant]
     Route: 048
  6. CLINDAMYCIN [Concomitant]
     Route: 048
  7. ATROVENT [Concomitant]
     Route: 055
  8. SEREVENT [Concomitant]
     Route: 055
  9. FLOVENT [Concomitant]
     Route: 055
  10. PREDNISONE [Concomitant]
     Route: 048
  11. IMODIUM AD [Concomitant]
     Route: 048
  12. FOSAMAX [Concomitant]
     Route: 048
  13. PRILOSEC [Concomitant]
     Route: 048
  14. CYTOMEL [Concomitant]
     Route: 048
  15. SYNTHROID [Concomitant]
     Route: 048
  16. VICODIN [Concomitant]
     Route: 048

REACTIONS (6)
  - Visual impairment [Unknown]
  - Abdominal discomfort [Unknown]
  - Constipation [Unknown]
  - Nasal congestion [Unknown]
  - Headache [Unknown]
  - Hot flush [Unknown]
